FAERS Safety Report 16751381 (Version 1)
Quarter: 2019Q3

REPORT INFORMATION
  Report Type: Spontaneous
  Country: US (occurrence: US)
  Receive Date: 20190828
  Receipt Date: 20190828
  Transmission Date: 20191005
  Serious: No
  Sender: FDA-Public Use
  Company Number: US-HORIZON-PEN-0790-2019

PATIENT
  Age: 95 Year
  Sex: Female

DRUGS (1)
  1. PENNSAID [Suspect]
     Active Substance: DICLOFENAC SODIUM
     Indication: ARTHRALGIA
     Dosage: 1 SAMPLE PACKET BID
     Dates: start: 20190818

REACTIONS (2)
  - Product physical consistency issue [Not Recovered/Not Resolved]
  - Product residue present [Not Recovered/Not Resolved]
